FAERS Safety Report 22127064 (Version 2)
Quarter: 2023Q2

REPORT INFORMATION
  Report Type: Report from Study
  Country: US (occurrence: US)
  Receive Date: 20230322
  Receipt Date: 20230425
  Transmission Date: 20230722
  Serious: No
  Sender: FDA-Public Use
  Company Number: US-LUNDBECK-DKLU3059190

PATIENT
  Age: 56 Year
  Sex: Female

DRUGS (1)
  1. VYEPTI [Suspect]
     Active Substance: EPTINEZUMAB-JJMR
     Indication: Migraine
     Route: 041
     Dates: start: 202210

REACTIONS (3)
  - Hypotension [Unknown]
  - Therapeutic response decreased [Unknown]
  - Therapeutic product effect delayed [Recovered/Resolved]
